FAERS Safety Report 18585146 (Version 1)
Quarter: 2020Q4

REPORT INFORMATION
  Report Type: Spontaneous
  Country: US (occurrence: US)
  Receive Date: 20201203
  Receipt Date: 20201203
  Transmission Date: 20210114
  Serious: Yes (Other)
  Sender: FDA-Public Use
  Company Number: None

PATIENT
  Age: 36 Year
  Sex: Female
  Weight: 58.97 kg

DRUGS (1)
  1. GENERIC FOR NUVARING [Suspect]
     Active Substance: ETHINYL ESTRADIOL\ETONOGESTREL
     Indication: CONTRACEPTION

REACTIONS (13)
  - Burning sensation [None]
  - Scar [None]
  - Product substitution issue [None]
  - Alopecia [None]
  - Skin exfoliation [None]
  - Complication associated with device [None]
  - Urinary tract infection [None]
  - Malaise [None]
  - Impaired healing [None]
  - Muscle spasms [None]
  - Breast pain [None]
  - Skin irritation [None]
  - Rash [None]

NARRATIVE: CASE EVENT DATE: 20200501
